FAERS Safety Report 21172250 (Version 1)
Quarter: 2022Q3

REPORT INFORMATION
  Report Type: Spontaneous
  Country: DE (occurrence: DE)
  Receive Date: 20220804
  Receipt Date: 20220804
  Transmission Date: 20221027
  Serious: Yes (Other)
  Sender: FDA-Public Use
  Company Number: DE-ENDO PHARMACEUTICALS INC-2022-004811

PATIENT
  Age: 23 Year
  Sex: Female

DRUGS (2)
  1. TESTIM [Suspect]
     Active Substance: TESTOSTERONE
     Indication: Gender dysphoria
     Dosage: UNK UNKNOWN, UNKNOWN
     Route: 065
  2. TESTIM [Suspect]
     Active Substance: TESTOSTERONE
     Indication: Hormone therapy

REACTIONS (5)
  - Atypical mycobacterial infection [Recovered/Resolved]
  - Hodgkin^s disease [Recovered/Resolved]
  - Lymphadenopathy [Recovered/Resolved]
  - Tracheo-oesophageal fistula [Recovered/Resolved]
  - Off label use [Unknown]
